FAERS Safety Report 4388229-2 (Version None)
Quarter: 2004Q2

REPORT INFORMATION
  Report Type: 
  Country: None (occurrence: None)
  Receive Date: 20040629
  Receipt Date: 20040617
  Transmission Date: 20050107
  Serious: Yes (Hospitalization)
  Sender: FDA-Public Use
  Company Number: FLUV00303003497

PATIENT
  Age: 53 Year
  Sex: Female
  Weight: 57 kg

DRUGS (5)
  1. LUVOX [Suspect]
     Indication: DEPRESSION
     Dosage: 50 MG DAILY PO, 100 MG DAILY PO, 150 MG DAILY PO
     Route: 048
     Dates: start: 20001106, end: 20001112
  2. LUVOX [Suspect]
     Indication: DEPRESSION
     Dosage: 50 MG DAILY PO, 100 MG DAILY PO, 150 MG DAILY PO
     Route: 048
     Dates: start: 20001113, end: 20001126
  3. LUVOX [Suspect]
     Indication: DEPRESSION
     Dosage: 50 MG DAILY PO, 100 MG DAILY PO, 150 MG DAILY PO
     Route: 048
     Dates: start: 20001126
  4. MEILAX (ETHYL LOFLAZEPATE) [Concomitant]
  5. AMOBAN (ZOPICLONE) [Concomitant]

REACTIONS (3)
  - CONDITION AGGRAVATED [None]
  - NASOPHARYNGITIS [None]
  - PYELONEPHRITIS [None]
